FAERS Safety Report 5202632-X (Version None)
Quarter: 2006Q4

REPORT INFORMATION
  Report Type: 
  Country: None (occurrence: None)
  Receive Date: 20061018
  Receipt Date: 20050729
  Transmission Date: 20070319
  Serious: Yes (Other)
  Sender: FDA-Public Use
  Company Number: PHEH2005US08437

PATIENT
  Sex: Female

DRUGS (1)
  1. ZOMETA [Suspect]
     Indication: METASTASES TO BONE
     Dates: start: 20020601, end: 20041201

REACTIONS (5)
  - BONE DISORDER [None]
  - DYSGEUSIA [None]
  - IMPAIRED HEALING [None]
  - INFECTION [None]
  - TOOTH EXTRACTION [None]
